FAERS Safety Report 11152272 (Version 1)
Quarter: 2015Q2

REPORT INFORMATION
  Report Type: Spontaneous
  Country: US (occurrence: None)
  Receive Date: 20150529
  Receipt Date: 20150529
  Transmission Date: 20150821
  Serious: Yes (Disabling)
  Sender: FDA-Public Use
  Company Number: None

PATIENT
  Age: 65 Year
  Sex: Female
  Weight: 79.38 kg

DRUGS (7)
  1. HYDROCODONE BITARTRATE AND ACETAMINOPHEN [Suspect]
     Active Substance: ACETAMINOPHEN\HYDROCODONE BITARTRATE
     Indication: POST LAMINECTOMY SYNDROME
     Dosage: PILLS
     Route: 048
     Dates: start: 20150528, end: 20150528
  2. CLONAZEPAM. [Concomitant]
     Active Substance: CLONAZEPAM
  3. ATORVASTATIN [Concomitant]
     Active Substance: ATORVASTATIN
  4. HYDROCODONE BITARTRATE AND ACETAMINOPHEN [Suspect]
     Active Substance: ACETAMINOPHEN\HYDROCODONE BITARTRATE
     Indication: BACK PAIN
     Dosage: PILLS
     Route: 048
     Dates: start: 20150528, end: 20150528
  5. RIZATRIPTAN [Concomitant]
     Active Substance: RIZATRIPTAN
  6. VITAMIN D3 [Concomitant]
     Active Substance: CHOLECALCIFEROL
  7. HYDROCODONE BITARTRATE AND ACETAMINOPHEN [Suspect]
     Active Substance: ACETAMINOPHEN\HYDROCODONE BITARTRATE
     Indication: PROCEDURAL PAIN
     Dosage: PILLS
     Route: 048
     Dates: start: 20150528, end: 20150528

REACTIONS (4)
  - Somnolence [None]
  - Drug ineffective [None]
  - Product substitution issue [None]
  - Drug effect incomplete [None]

NARRATIVE: CASE EVENT DATE: 20150523
